FAERS Safety Report 10432231 (Version 2)
Quarter: 2014Q3

REPORT INFORMATION
  Report Type: Spontaneous
  Country: IT (occurrence: IT)
  Receive Date: 20140905
  Receipt Date: 20140905
  Transmission Date: 20150326
  Serious: Yes (Other)
  Sender: FDA-Public Use
  Company Number: IT-ACCORD-025711

PATIENT
  Age: 53 Year
  Sex: Male

DRUGS (1)
  1. TACROLIMUS. [Suspect]
     Active Substance: TACROLIMUS
     Indication: RENAL TRANSPLANT
     Dosage: WITHIN A MONTH 4 MG DAILY BECAUSE OF HIGH DRUG SERUM LEVEL.

REACTIONS (3)
  - Drug level increased [Unknown]
  - Polymyositis [Recovered/Resolved]
  - Hepatitis C [Unknown]
